FAERS Safety Report 13929802 (Version 3)
Quarter: 2018Q4

REPORT INFORMATION
  Report Type: Spontaneous
  Country: JP (occurrence: JP)
  Receive Date: 20170901
  Receipt Date: 20181220
  Transmission Date: 20190204
  Serious: Yes (Death)
  Sender: FDA-Public Use
  Company Number: JP-ACTELION-A-CH2017-158820

PATIENT
  Age: 43 Year
  Sex: Female
  Weight: 40 kg

DRUGS (16)
  1. UPTRAVI [Suspect]
     Active Substance: SELEXIPAG
     Dosage: 0.4 MG, BID
     Route: 048
     Dates: start: 20170522, end: 20170811
  2. OPSUMIT [Concomitant]
     Active Substance: MACITENTAN
     Indication: PULMONARY ARTERIAL HYPERTENSION
     Dosage: 10 MG, QD
     Route: 048
     Dates: end: 20170621
  3. UPTRAVI [Suspect]
     Active Substance: SELEXIPAG
     Dosage: 0.6 MG, QD
     Route: 048
     Dates: start: 20170520, end: 20170521
  4. UPTRAVI [Suspect]
     Active Substance: SELEXIPAG
     Dosage: 0.2 MG, BID
     Route: 048
     Dates: start: 20170518, end: 20170519
  5. PARIET [Concomitant]
     Active Substance: RABEPRAZOLE SODIUM
     Dosage: 10 MG, QD
     Dates: end: 20170810
  6. LIVACT [Concomitant]
     Active Substance: AMINO ACIDS
     Dosage: 12.45 G, QD
     Dates: end: 20170601
  7. FUROSEMIDE. [Concomitant]
     Active Substance: FUROSEMIDE
     Dosage: 60 MG, QD
     Dates: end: 20170811
  8. FLOLAN [Concomitant]
     Active Substance: EPOPROSTENOL SODIUM
     Indication: PULMONARY ARTERIAL HYPERTENSION
     Dosage: 0.5 MG, QD
     Dates: end: 20170517
  9. ADCIRCA [Concomitant]
     Active Substance: TADALAFIL
     Indication: PULMONARY ARTERIAL HYPERTENSION
     Dosage: 20 MG, QD
     Route: 048
     Dates: end: 20170621
  10. REVOLADE [Concomitant]
     Active Substance: ELTROMBOPAG
     Dosage: 12.5 MG, QD
     Dates: end: 20170810
  11. PREDONINE [Concomitant]
     Active Substance: PREDNISOLONE
     Indication: SYSTEMIC LUPUS ERYTHEMATOSUS
     Dosage: 20 MG, QD
     Dates: end: 20170811
  12. POTASSIUM CANRENOATE [Concomitant]
     Active Substance: CANRENOATE POTASSIUM
     Dosage: 400 MG, QD
     Dates: end: 20170810
  13. FLOLAN [Concomitant]
     Active Substance: EPOPROSTENOL SODIUM
     Dosage: 0.3 MG, QD
     Route: 048
     Dates: start: 20170518, end: 20170811
  14. UPTRAVI [Suspect]
     Active Substance: SELEXIPAG
     Indication: PULMONARY ARTERIAL HYPERTENSION
     Dosage: 0.2 MG, QD
     Route: 048
     Dates: start: 20170517, end: 20170517
  15. SAMSCA [Concomitant]
     Active Substance: TOLVAPTAN
     Dosage: 15 MG, QD
     Dates: end: 20170810
  16. HISHIPHAGEN C [Concomitant]
     Indication: PORTAL HYPERTENSION
     Dosage: 20 ML, QD
     Dates: end: 20170810

REACTIONS (3)
  - Portal hypertension [Fatal]
  - Concomitant disease aggravated [Fatal]
  - Ascites [Fatal]

NARRATIVE: CASE EVENT DATE: 201708
